FAERS Safety Report 7988872-5 (Version None)
Quarter: 2011Q4

REPORT INFORMATION
  Report Type: 
  Country: None (occurrence: None)
  Receive Date: 20111215
  Receipt Date: 20111215
  Transmission Date: 20120403
  Serious: Yes (Other)
  Sender: FDA-Public Use
  Company Number: None

PATIENT
  Sex: Female
  Weight: 58.0604 kg

DRUGS (1)
  1. LISINOPRIL [Suspect]
     Dosage: 20 MG. 1 DAILY ORAL
     Route: 048
     Dates: start: 20090201, end: 20111008

REACTIONS (5)
  - ARTHRALGIA [None]
  - MYALGIA [None]
  - GAIT DISTURBANCE [None]
  - NIGHT SWEATS [None]
  - PAIN IN EXTREMITY [None]
